FAERS Safety Report 11481276 (Version 2)
Quarter: 2015Q3

REPORT INFORMATION
  Report Type: Spontaneous
  Country: US (occurrence: US)
  Receive Date: 20150909
  Receipt Date: 20150910
  Transmission Date: 20151125
  Serious: Yes (Other)
  Sender: FDA-Public Use
  Company Number: PHEH2015US017397

PATIENT
  Sex: Female
  Weight: 50.34 kg

DRUGS (5)
  1. SYNTHROID [Concomitant]
     Active Substance: LEVOTHYROXINE SODIUM
     Indication: PRODUCT USED FOR UNKNOWN INDICATION
     Route: 065
  2. CALCITONIN [Concomitant]
     Active Substance: CALCITONIN
     Indication: OSTEOPOROSIS
     Dosage: UNK
     Route: 045
     Dates: start: 2009, end: 2012
  3. CLOBUTINOL [Concomitant]
     Active Substance: CLOBUTINOL
     Indication: PRODUCT USED FOR UNKNOWN INDICATION
     Dosage: UNK
     Route: 045
     Dates: start: 2012
  4. MIACALCIN [Suspect]
     Active Substance: CALCITONIN SALMON
     Indication: OSTEOPOROSIS
     Dosage: UNK
     Route: 045
     Dates: start: 2009, end: 2012
  5. MIACALCIN [Suspect]
     Active Substance: CALCITONIN SALMON
     Dosage: UNK
     Route: 045
     Dates: start: 20130203

REACTIONS (3)
  - Abdominal discomfort [Not Recovered/Not Resolved]
  - Breast cancer [Not Recovered/Not Resolved]
  - Malaise [Not Recovered/Not Resolved]

NARRATIVE: CASE EVENT DATE: 2013
